FAERS Safety Report 17055196 (Version 4)
Quarter: 2020Q1

REPORT INFORMATION
  Report Type: Spontaneous
  Country: US (occurrence: US)
  Receive Date: 20191120
  Receipt Date: 20200124
  Transmission Date: 20200409
  Serious: Yes (Other)
  Sender: FDA-Public Use
  Company Number: US-PFIZER INC-2019482398

PATIENT
  Age: 81 Year
  Sex: Male
  Weight: 68.27 kg

DRUGS (2)
  1. CENTRUM SILVER ADULTS 50+ [Suspect]
     Active Substance: MINERALS\VITAMINS
     Indication: VITAMIN SUPPLEMENTATION
     Dosage: 1 DF, DAILY
  2. FIBERCON [Suspect]
     Active Substance: CALCIUM POLYCARBOPHIL
     Dosage: UNK

REACTIONS (5)
  - Weight decreased [Recovering/Resolving]
  - Intestinal perforation [Recovering/Resolving]
  - Haemorrhage [Recovering/Resolving]
  - Cerebrovascular accident [Unknown]
  - Prostate cancer [Unknown]
